FAERS Safety Report 6326746-6 (Version None)
Quarter: 2009Q3

REPORT INFORMATION
  Report Type: 
  Country: None (occurrence: None)
  Receive Date: 20090825
  Receipt Date: 20090818
  Transmission Date: 20100115
  Serious: Yes (Hospitalization, Other)
  Sender: FDA-Public Use
  Company Number: PHHY2009CA24743

PATIENT
  Age: 65 Year
  Sex: Male

DRUGS (20)
  1. NEORAL [Suspect]
     Indication: HEART TRANSPLANT
     Dosage: 175 MG, BID
     Route: 048
     Dates: start: 20041201
  2. MYCOPHENOLATE MOFETIL [Suspect]
     Indication: HEART TRANSPLANT
     Dosage: 1500 MG, BID
     Dates: start: 20041201
  3. MYCOPHENOLATE MOFETIL [Suspect]
     Dosage: 1000 MG, BID
  4. PREDNISONE [Suspect]
     Indication: HEART TRANSPLANT
  5. IMMUNOGLOBULIN ANTI-HUMAN-LYMPHOCYTIC [Concomitant]
     Indication: HEART TRANSPLANT
  6. DILTIAZEM [Concomitant]
  7. OMEPRAZOLE [Concomitant]
  8. TRAZODONE HCL [Concomitant]
  9. SIMVASTATIN [Concomitant]
  10. LEVOTHYROXINE SODIUM [Concomitant]
  11. CITALOPRAM [Concomitant]
  12. INSULIN [Concomitant]
  13. SULFAMETHOXAZOLE TRIMETHOPRIM [Concomitant]
  14. ACYCLOVIR [Concomitant]
  15. PYRIDOXINE [Concomitant]
  16. ISONIAZID [Concomitant]
  17. ASPIRIN [Concomitant]
  18. GANCICLOVIR [Concomitant]
     Indication: CYTOMEGALOVIRUS INFECTION
     Dosage: 5 MG/KG, BID
  19. GANCICLOVIR [Concomitant]
     Dosage: 5 MG/KG, BID
     Route: 042
  20. ASPIRIN [Concomitant]

REACTIONS (7)
  - ASTHENIA [None]
  - CYTOMEGALOVIRUS INFECTION [None]
  - DIARRHOEA [None]
  - MALAISE [None]
  - MARROW HYPERPLASIA [None]
  - PANCYTOPENIA [None]
  - PYREXIA [None]
